FAERS Safety Report 20132927 (Version 1)
Quarter: 2021Q4

REPORT INFORMATION
  Report Type: Spontaneous
  Country: US (occurrence: US)
  Receive Date: 20211201
  Receipt Date: 20211201
  Transmission Date: 20220304
  Serious: No
  Sender: FDA-Public Use
  Company Number: US-ELI_LILLY_AND_COMPANY-US202111001319

PATIENT
  Sex: Male

DRUGS (4)
  1. HUMULIN N [Suspect]
     Active Substance: INSULIN HUMAN
     Indication: Type 2 diabetes mellitus
     Dosage: 35 U, UNKNOWN
     Route: 065
     Dates: start: 2020
  2. HUMULIN N [Suspect]
     Active Substance: INSULIN HUMAN
     Indication: Type 2 diabetes mellitus
     Dosage: 35 U, UNKNOWN
     Route: 065
     Dates: start: 2020
  3. HUMULIN N [Suspect]
     Active Substance: INSULIN HUMAN
     Dosage: 35 U, UNKNOWN
     Route: 065
  4. HUMULIN N [Suspect]
     Active Substance: INSULIN HUMAN
     Dosage: 35 U, UNKNOWN
     Route: 065

REACTIONS (1)
  - Accidental underdose [Unknown]
